FAERS Safety Report 17218365 (Version 1)
Quarter: 2020Q1

REPORT INFORMATION
  Report Type: Spontaneous
  Country: US (occurrence: US)
  Receive Date: 20191230
  Receipt Date: 20191230
  Transmission Date: 20200409
  Serious: Yes (Other)
  Sender: FDA-Public Use
  Company Number: None

PATIENT
  Age: 5 Year
  Sex: Female
  Weight: 18 kg

DRUGS (3)
  1. MIRALAX [Suspect]
     Active Substance: POLYETHYLENE GLYCOL 3350
     Indication: CONSTIPATION
     Route: 048
     Dates: start: 20170101, end: 20191203
  2. VITAMIN [Concomitant]
     Active Substance: VITAMINS
  3. PROBIOTICS [Concomitant]
     Active Substance: PROBIOTICS NOS

REACTIONS (5)
  - Speech disorder [None]
  - Abnormal behaviour [None]
  - Sleep terror [None]
  - Fear [None]
  - Anger [None]

NARRATIVE: CASE EVENT DATE: 20191203
